FAERS Safety Report 8338523-5 (Version None)
Quarter: 2012Q2

REPORT INFORMATION
  Report Type: 
  Country: None (occurrence: None)
  Receive Date: 20120504
  Receipt Date: 20120430
  Transmission Date: 20120825
  Serious: No
  Sender: FDA-Public Use
  Company Number: US-B.I. PHARMACEUTICALS,INC./RIDGEFIELD-2012-BP-09772BP

PATIENT
  Sex: Female

DRUGS (7)
  1. VIAMIN D-6 [Concomitant]
     Indication: PROPHYLAXIS
  2. VITAMIN B-12 [Concomitant]
     Indication: PROPHYLAXIS
     Route: 060
  3. VITAMIN D [Concomitant]
     Indication: PROPHYLAXIS
     Dosage: 2000 MG
     Route: 048
  4. CALCIUM, MAGNESIUM, ZINC SUPPLEMENT [Concomitant]
     Indication: PROPHYLAXIS
     Route: 048
  5. PROPAFENONE HCL [Concomitant]
     Indication: CARDIAC DISORDER
     Route: 048
     Dates: start: 20120401
  6. PRADAXA [Suspect]
     Indication: ATRIAL FIBRILLATION
     Dosage: 150 MG
     Route: 048
     Dates: start: 20120310
  7. PREDNISONE TAPER [Concomitant]
     Indication: POLYMYALGIA RHEUMATICA
     Route: 048
     Dates: start: 20110501

REACTIONS (1)
  - OEDEMA PERIPHERAL [None]
